FAERS Safety Report 4488024-X (Version None)
Quarter: 2004Q4

REPORT INFORMATION
  Report Type: 
  Country: None (occurrence: None)
  Receive Date: 20041028
  Receipt Date: 20041020
  Transmission Date: 20050328
  Serious: Yes (Death)
  Sender: FDA-Public Use
  Company Number: US-MERCK-0410USA03345

PATIENT
  Sex: Female

DRUGS (2)
  1. COSMEGEN [Suspect]
     Indication: GESTATIONAL TROPHOBLASTIC TUMOUR
     Route: 065
  2. METHOTREXATE [Concomitant]
     Route: 065

REACTIONS (1)
  - CHORIOCARCINOMA [None]
